FAERS Safety Report 13964490 (Version 1)
Quarter: 2017Q3

REPORT INFORMATION
  Report Type: Spontaneous
  Country: RU (occurrence: RU)
  Receive Date: 20170913
  Receipt Date: 20170913
  Transmission Date: 20171128
  Serious: Yes (Hospitalization)
  Sender: FDA-Public Use
  Company Number: RU-BAYER-2017-173104

PATIENT
  Age: 52 Year
  Sex: Female

DRUGS (2)
  1. ANGELIQ [Suspect]
     Active Substance: DROSPIRENONE\ESTRADIOL
     Indication: HOT FLUSH
     Dosage: 1 DF, QD
     Route: 048
     Dates: start: 201708, end: 20170904
  2. ANGELIQ [Suspect]
     Active Substance: DROSPIRENONE\ESTRADIOL
     Indication: POSTMENOPAUSE

REACTIONS (4)
  - Urticaria [Not Recovered/Not Resolved]
  - Angioedema [Not Recovered/Not Resolved]
  - Asphyxia [Not Recovered/Not Resolved]
  - Eye swelling [Not Recovered/Not Resolved]

NARRATIVE: CASE EVENT DATE: 201708
